FAERS Safety Report 7964189-X (Version None)
Quarter: 2011Q4

REPORT INFORMATION
  Report Type: 
  Country: None (occurrence: None)
  Receive Date: 20111206
  Receipt Date: 20110902
  Transmission Date: 20120403
  Serious: Yes (Other)
  Sender: FDA-Public Use
  Company Number: DSM-2011-01019

PATIENT
  Age: 77 Year
  Sex: Female
  Weight: 97.3 kg

DRUGS (5)
  1. EMCORETIC (HYDROCHLOROTHIAZIDE, BISOPROLOL FUMARATE) (HYDROCHLOROTHIAZ [Concomitant]
  2. APOCARD (FLECAINIDE ACETATE) (FLECAINIDE ACETATE) [Concomitant]
  3. BETASERC (BETAHISTINE) (BETAHISTINE) [Concomitant]
  4. SEVIKAR (OLMESARTAN MEDOXOMIL, AMLODIPINE BESILATE) (TABLET) (OLMESART [Suspect]
     Indication: HYPERTENSION
     Dosage: 20/5MG (1 IN 1 D), ORAL
     Route: 048
     Dates: start: 20110407, end: 20110714
  5. LIPITOR [Concomitant]

REACTIONS (5)
  - OEDEMA PERIPHERAL [None]
  - HYPOAESTHESIA ORAL [None]
  - COUGH [None]
  - DYSPNOEA [None]
  - FEELING ABNORMAL [None]
